FAERS Safety Report 13738251 (Version 1)
Quarter: 2017Q3

REPORT INFORMATION
  Report Type: Spontaneous
  Country: BR (occurrence: BR)
  Receive Date: 20170710
  Receipt Date: 20170710
  Transmission Date: 20171127
  Serious: Yes (Death, Other)
  Sender: FDA-Public Use
  Company Number: PHHY2010BR53023

PATIENT
  Sex: Female
  Weight: 55 kg

DRUGS (2)
  1. HYDERGINE [Suspect]
     Active Substance: ERGOLOID MESYLATES
     Indication: LABYRINTHITIS
     Dosage: 1 DF, DAILY
     Dates: start: 2004
  2. HYDERGINE [Suspect]
     Active Substance: ERGOLOID MESYLATES
     Indication: DIZZINESS

REACTIONS (4)
  - Bedridden [Unknown]
  - Hepatic cancer [Unknown]
  - Multiple organ dysfunction syndrome [Fatal]
  - Weight decreased [Unknown]
